FAERS Safety Report 6161988-4 (Version None)
Quarter: 2009Q2

REPORT INFORMATION
  Report Type: 
  Country: None (occurrence: None)
  Receive Date: 20090417
  Receipt Date: 20090417
  Transmission Date: 20091009
  Serious: Yes (Other)
  Sender: FDA-Public Use
  Company Number: None

PATIENT
  Age: 52 Year
  Sex: Female
  Weight: 81.6475 kg

DRUGS (4)
  1. XYZAL [Suspect]
     Indication: NASOPHARYNGITIS
     Dosage: 1 TABLET 1X PER DAY PO
     Route: 048
     Dates: start: 20090414, end: 20090414
  2. XYZAL [Suspect]
     Indication: SINUS OPERATION
     Dosage: 1 TABLET 1X PER DAY PO
     Route: 048
     Dates: start: 20090414, end: 20090414
  3. XYZAL [Suspect]
     Indication: NASOPHARYNGITIS
     Dosage: 1 TABLET 1X PER DAY PO
     Route: 048
     Dates: start: 20090415, end: 20090415
  4. XYZAL [Suspect]
     Indication: SINUS OPERATION
     Dosage: 1 TABLET 1X PER DAY PO
     Route: 048
     Dates: start: 20090415, end: 20090415

REACTIONS (1)
  - MUSCLE SPASMS [None]
